FAERS Safety Report 7914730-8 (Version None)
Quarter: 2011Q4

REPORT INFORMATION
  Report Type: 
  Country: None (occurrence: None)
  Receive Date: 20111115
  Receipt Date: 20111110
  Transmission Date: 20120403
  Serious: Yes (Hospitalization)
  Sender: FDA-Public Use
  Company Number: PHEH2011US009100

PATIENT
  Sex: Male

DRUGS (1)
  1. EXJADE [Suspect]
     Indication: HAEMOGLOBINURIA
     Dosage: 2125 MG, DAILY
     Route: 048
     Dates: start: 20100618, end: 20111107

REACTIONS (1)
  - VIRAL DIARRHOEA [None]
